FAERS Safety Report 15448948 (Version 1)
Quarter: 2018Q3

REPORT INFORMATION
  Report Type: Spontaneous
  Country: US (occurrence: US)
  Receive Date: 20180926
  Receipt Date: 20180926
  Transmission Date: 20181010
  Serious: Yes (Disabling)
  Sender: FDA-Public Use
  Company Number: None

PATIENT
  Age: 67 Year
  Sex: Female
  Weight: 54 kg

DRUGS (1)
  1. OCEAN SALINE NASAL SPRAY [Suspect]
     Active Substance: SODIUM CHLORIDE
     Indication: HYPERSENSITIVITY
     Dosage: ?          OTHER ROUTE:NASAL SPRAY?

REACTIONS (5)
  - Chest discomfort [None]
  - Wheezing [None]
  - Headache [None]
  - Productive cough [None]
  - Product use issue [None]

NARRATIVE: CASE EVENT DATE: 20180509
